FAERS Safety Report 4872747-4 (Version None)
Quarter: 2006Q1

REPORT INFORMATION
  Report Type: 
  Country: None (occurrence: None)
  Receive Date: 20060103
  Receipt Date: 20051222
  Transmission Date: 20060701
  Serious: Yes (Other)
  Sender: FDA-Public Use
  Company Number: DE_051017213

PATIENT
  Age: 4 Year
  Sex: Female

DRUGS (1)
  1. CEFACLOR [Suspect]
     Indication: OTITIS MEDIA
     Dosage: ORAL
     Route: 048
     Dates: start: 20050924, end: 20051003

REACTIONS (1)
  - SERUM SICKNESS [None]
